FAERS Safety Report 9328275 (Version 2)
Quarter: 2013Q3

REPORT INFORMATION
  Report Type: Spontaneous
  Country: US (occurrence: US)
  Receive Date: 20130604
  Receipt Date: 20130701
  Transmission Date: 20140515
  Serious: Yes (Other)
  Sender: FDA-Public Use
  Company Number: US-MILLENNIUM PHARMACEUTICALS, INC.-2013-04192

PATIENT
  Age: 50 Year
  Sex: Male

DRUGS (7)
  1. VELCADE [Suspect]
     Indication: PLASMACYTOMA
     Dosage: 1.3 MG/M2, CYCLIC
     Route: 042
     Dates: start: 20100528
  2. DEXAMETHASONE [Suspect]
     Indication: PLASMACYTOMA
  3. THALIDOMIDE [Suspect]
     Indication: PLASMACYTOMA
  4. CISPLATIN [Suspect]
     Indication: PLASMACYTOMA
  5. ADRIAMYCIN /00330901/ [Suspect]
     Indication: PLASMACYTOMA
  6. CYCLOPHOSPHAMIDE [Suspect]
     Indication: PLASMACYTOMA
  7. ETOPOSIDE [Suspect]
     Indication: PLASMACYTOMA

REACTIONS (1)
  - Plasma cell myeloma [Unknown]
